FAERS Safety Report 10897868 (Version 4)
Quarter: 2015Q2

REPORT INFORMATION
  Report Type: Report from Study
  Country: US (occurrence: US)
  Receive Date: 20150309
  Receipt Date: 20150407
  Transmission Date: 20150821
  Serious: Yes (Other)
  Sender: FDA-Public Use
  Company Number: US-ACTELION-A-US2015-113927

PATIENT
  Age: 74 Year
  Sex: Female

DRUGS (2)
  1. COUMADIN [Concomitant]
     Active Substance: WARFARIN SODIUM
  2. VELETRI [Suspect]
     Active Substance: EPOPROSTENOL
     Indication: PULMONARY ARTERIAL HYPERTENSION
     Dosage: 46.6 NG/KG, PER MIN
     Route: 042
     Dates: start: 20150123

REACTIONS (8)
  - Balance disorder [Unknown]
  - Fall [Unknown]
  - Pain in jaw [Unknown]
  - Weight decreased [Unknown]
  - Diarrhoea [Unknown]
  - Pruritus [Unknown]
  - Cardiac assistance device user [Unknown]
  - Decreased appetite [Unknown]
